FAERS Safety Report 6087623-1 (Version None)
Quarter: 2009Q1

REPORT INFORMATION
  Report Type: 
  Country: None (occurrence: None)
  Receive Date: 20090223
  Receipt Date: 20090220
  Transmission Date: 20090719
  Serious: Yes (Hospitalization)
  Sender: FDA-Public Use
  Company Number: US-SANOFI-SYNTHELABO-F01200900052

PATIENT
  Age: 60 Year
  Sex: Female

DRUGS (4)
  1. CAPECITABINE [Suspect]
     Dosage: UNK
     Route: 048
     Dates: start: 20080926, end: 20080926
  2. BEVACIZUMAB [Suspect]
     Route: 042
     Dates: start: 20080926, end: 20080926
  3. OXALIPLATIN [Suspect]
     Indication: COLON CANCER
     Route: 041
     Dates: start: 20080926, end: 20080926
  4. IMODIUM [Concomitant]

REACTIONS (3)
  - ABDOMINAL PAIN [None]
  - DIARRHOEA [None]
  - ILEITIS [None]
